FAERS Safety Report 4972336-7 (Version None)
Quarter: 2006Q2

REPORT INFORMATION
  Report Type: 
  Country: None (occurrence: None)
  Receive Date: 20060413
  Receipt Date: 20060404
  Transmission Date: 20061013
  Serious: Yes (Hospitalization, Other)
  Sender: FDA-Public Use
  Company Number: FR-ABBOTT-06P-056-0329898-00

PATIENT
  Age: 65 Year
  Sex: Female

DRUGS (2)
  1. HUMIRA [Suspect]
     Indication: RHEUMATOID ARTHRITIS
     Route: 058
     Dates: start: 20050120, end: 20060210
  2. METHOTREXATE [Interacting]
     Indication: RHEUMATOID ARTHRITIS
     Route: 048
     Dates: start: 20050120, end: 20060210

REACTIONS (7)
  - CULTURE URINE POSITIVE [None]
  - DIARRHOEA [None]
  - DRUG INTERACTION [None]
  - INFLUENZA [None]
  - LUNG DISORDER [None]
  - RESPIRATORY DISTRESS [None]
  - SEPTIC SHOCK [None]
